FAERS Safety Report 21918132 (Version 1)
Quarter: 2023Q1

REPORT INFORMATION
  Report Type: Spontaneous
  Country: PL (occurrence: PL)
  Receive Date: 20230127
  Receipt Date: 20230127
  Transmission Date: 20230418
  Serious: Yes (Death)
  Sender: FDA-Public Use
  Company Number: PL-BAYER-2023P005563

PATIENT

DRUGS (1)
  1. VENTAVIS [Suspect]
     Active Substance: ILOPROST
     Indication: Product used for unknown indication
     Route: 055

REACTIONS (1)
  - Urinary tract infection [Fatal]

NARRATIVE: CASE EVENT DATE: 20220101
